FAERS Safety Report 9476739 (Version 2)
Quarter: 2013Q3

REPORT INFORMATION
  Report Type: Spontaneous
  Country: US (occurrence: US)
  Receive Date: 20130826
  Receipt Date: 20130826
  Transmission Date: 20140515
  Serious: No
  Sender: FDA-Public Use
  Company Number: US-BRISTOL-MYERS SQUIBB COMPANY-18696740

PATIENT
  Age: 57 Year
  Sex: Female
  Weight: 60.32 kg

DRUGS (7)
  1. KENALOG-40 INJ [Suspect]
     Indication: RADICULAR PAIN
     Route: 008
     Dates: start: 20130312
  2. KENALOG-40 INJ [Suspect]
     Indication: BACK PAIN
     Route: 008
     Dates: start: 20130312
  3. KENALOG-40 INJ [Suspect]
     Indication: INTERVERTEBRAL DISC DEGENERATION
     Route: 008
     Dates: start: 20130312
  4. METHOCARBAMOL [Concomitant]
  5. IBUPROFEN [Concomitant]
  6. TYLENOL [Concomitant]
  7. CHLORZOXAZONE [Concomitant]

REACTIONS (3)
  - Swelling face [Not Recovered/Not Resolved]
  - Erythema [Recovering/Resolving]
  - Headache [Recovering/Resolving]
